FAERS Safety Report 19009443 (Version 1)
Quarter: 2021Q1

REPORT INFORMATION
  Report Type: Report from Study
  Country: US (occurrence: US)
  Receive Date: 20210315
  Receipt Date: 20210315
  Transmission Date: 20210420
  Serious: Yes (Death, Life-Threatening, Other)
  Sender: FDA-Public Use
  Company Number: NVSC2021US056244

PATIENT
  Age: 4 Year

DRUGS (3)
  1. KYMRIAH [Suspect]
     Active Substance: TISAGENLECLEUCEL
     Indication: LYMPHOCYTIC LEUKAEMIA
     Dosage: UNK
     Route: 042
     Dates: start: 20200410
  2. FLUDARABINE [Concomitant]
     Active Substance: FLUDARABINE PHOSPHATE
     Indication: PRODUCT USED FOR UNKNOWN INDICATION
     Route: 065
  3. CYCLOPHOSPHAMIDE. [Concomitant]
     Active Substance: CYCLOPHOSPHAMIDE
     Indication: PRODUCT USED FOR UNKNOWN INDICATION
     Route: 065

REACTIONS (27)
  - Hepatotoxicity [Unknown]
  - Haemorrhage [Unknown]
  - Lymphocytic leukaemia [Unknown]
  - Haematocrit decreased [Unknown]
  - Hypoxia [Fatal]
  - Pulmonary toxicity [Unknown]
  - Thrombocytopenia [Unknown]
  - Haemoglobin decreased [Unknown]
  - Septic shock [Fatal]
  - Aspergillus infection [Unknown]
  - Cardiac failure [Unknown]
  - Renal failure [Unknown]
  - Human herpesvirus 6 infection [Unknown]
  - Pyrexia [Fatal]
  - Nephropathy toxic [Unknown]
  - BK virus infection [Unknown]
  - Hepatic failure [Unknown]
  - Stenotrophomonas infection [Unknown]
  - Cytokine release syndrome [Fatal]
  - Cardiotoxicity [Unknown]
  - Respiratory failure [Unknown]
  - Organ failure [Unknown]
  - Alpha haemolytic streptococcal infection [Unknown]
  - Neutropenia [Unknown]
  - Cytopenia [Unknown]
  - White blood cell count decreased [Unknown]
  - Treatment failure [Unknown]
